FAERS Safety Report 6382691-1 (Version None)
Quarter: 2009Q3

REPORT INFORMATION
  Report Type: 
  Country: None (occurrence: None)
  Receive Date: 20090928
  Receipt Date: 20090928
  Transmission Date: 20100115
  Serious: Yes (Life-Threatening)
  Sender: FDA-Public Use
  Company Number: None

PATIENT
  Age: 24 Year
  Sex: Female
  Weight: 97.5234 kg

DRUGS (2)
  1. FLUOXETINE [Suspect]
     Indication: MAJOR DEPRESSION
     Dosage: 30MG DAILY PO
     Route: 048
     Dates: start: 20081115, end: 20090925
  2. FLUOXETINE [Suspect]

REACTIONS (4)
  - MORBID THOUGHTS [None]
  - SELF-INJURIOUS IDEATION [None]
  - SUICIDAL IDEATION [None]
  - THINKING ABNORMAL [None]
